FAERS Safety Report 7135231-3 (Version None)
Quarter: 2010Q4

REPORT INFORMATION
  Report Type: 
  Country: None (occurrence: None)
  Receive Date: 20101203
  Receipt Date: 20101123
  Transmission Date: 20110411
  Serious: Yes (Hospitalization)
  Sender: FDA-Public Use
  Company Number: A0693029A

PATIENT
  Age: 52 Year
  Sex: Female
  Weight: 125.5 kg

DRUGS (7)
  1. AVANDIA [Suspect]
     Dosage: 4MG PER DAY
     Route: 048
     Dates: start: 20060501, end: 20070525
  2. AVANDAMET [Suspect]
     Route: 048
  3. GLUCOPHAGE [Concomitant]
  4. METFORMIN [Concomitant]
  5. GLUCOTROL [Concomitant]
  6. LISINOPRIL [Concomitant]
  7. POTASSIUM CHLORIDE [Concomitant]

REACTIONS (4)
  - CARDIAC FAILURE CONGESTIVE [None]
  - CONGESTIVE CARDIOMYOPATHY [None]
  - MYOCARDIAL INFARCTION [None]
  - TRANSIENT ISCHAEMIC ATTACK [None]
